FAERS Safety Report 24452595 (Version 5)
Quarter: 2025Q1

REPORT INFORMATION
  Report Type: Spontaneous
  Country: US (occurrence: US)
  Receive Date: 20241017
  Receipt Date: 20250115
  Transmission Date: 20250409
  Serious: Yes (Other)
  Sender: SANOFI AVENTIS
  Company Number: US-SA-2024SA294789

PATIENT
  Age: 55 Year
  Sex: Female
  Weight: 190 kg

DRUGS (4)
  1. DUPIXENT [Suspect]
     Active Substance: DUPILUMAB
     Indication: Eosinophilic oesophagitis
     Dosage: 300 MG, QW
     Route: 058
     Dates: start: 202406
  2. TADALAFIL [Concomitant]
     Active Substance: TADALAFIL
     Route: 065
  3. WINREVAIR [Concomitant]
     Active Substance: SOTATERCEPT-CSRK
     Route: 065
  4. OPSUMIT [Concomitant]
     Active Substance: MACITENTAN
     Route: 065

REACTIONS (8)
  - Loss of consciousness [Unknown]
  - Fatigue [Not Recovered/Not Resolved]
  - Pharyngitis streptococcal [Not Recovered/Not Resolved]
  - COVID-19 [Unknown]
  - Dyspnoea [Unknown]
  - Lacrimation increased [Unknown]
  - Nasopharyngitis [Unknown]
  - Eye irritation [Unknown]

NARRATIVE: CASE EVENT DATE: 20240101
